FAERS Safety Report 7164321-4 (Version None)
Quarter: 2010Q4

REPORT INFORMATION
  Report Type: 
  Country: None (occurrence: None)
  Receive Date: 20101201
  Receipt Date: 20101124
  Transmission Date: 20110411
  Serious: Yes (Other)
  Sender: FDA-Public Use
  Company Number: SP03290

PATIENT
  Age: 49 Year
  Sex: Male
  Weight: 89 kg

DRUGS (2)
  1. XIFAXAN [Suspect]
     Indication: OVERGROWTH BACTERIAL
     Dosage: 1200 MG (400 MG, 3 IN 1 D), ORAL
     Route: 048
     Dates: start: 20100820, end: 20100828
  2. MUTAFLOR [Concomitant]

REACTIONS (4)
  - ANOSMIA [None]
  - DYSGEUSIA [None]
  - HEAD INJURY [None]
  - OVERGROWTH BACTERIAL [None]
